FAERS Safety Report 19037662 (Version 1)
Quarter: 2021Q1

REPORT INFORMATION
  Report Type: Spontaneous
  Country: US (occurrence: US)
  Receive Date: 20210322
  Receipt Date: 20210322
  Transmission Date: 20210420
  Serious: Yes (Death, Hospitalization)
  Sender: FDA-Public Use
  Company Number: US-ACCORD-217811

PATIENT
  Age: 71 Year
  Sex: Female

DRUGS (1)
  1. CLOZAPINE ACCORD [Suspect]
     Active Substance: CLOZAPINE
     Indication: BIPOLAR DISORDER
     Dosage: ONCE DAY, STRENGTH 25 MG

REACTIONS (3)
  - General physical health deterioration [Unknown]
  - Acute myocardial infarction [Fatal]
  - COVID-19 [Unknown]

NARRATIVE: CASE EVENT DATE: 20210127
